FAERS Safety Report 5744342-6 (Version None)
Quarter: 2008Q2

REPORT INFORMATION
  Report Type: 
  Country: None (occurrence: None)
  Receive Date: 20080520
  Receipt Date: 20080507
  Transmission Date: 20081010
  Serious: Yes (Death, Hospitalization, Disabling, Other)
  Sender: FDA-Public Use
  Company Number: US-ELI_LILLY_AND_COMPANY-US200803003330

PATIENT
  Sex: Male

DRUGS (11)
  1. FORTEO [Suspect]
     Indication: OSTEOPOROSIS
     Dosage: 20 UG, DAILY (1/D)
     Dates: start: 20071213
  2. COUMADIN [Concomitant]
  3. CELEBREX [Concomitant]
  4. NIASPAN [Concomitant]
  5. TRAMADOL HCL [Concomitant]
  6. FLOMAX [Concomitant]
  7. LIPITOR [Concomitant]
  8. QUINAPRIL [Concomitant]
  9. VESICARE [Concomitant]
  10. WELLBUTRIN [Concomitant]
  11. LASIX [Concomitant]

REACTIONS (4)
  - AORTIC STENOSIS [None]
  - ASTHENIA [None]
  - FALL [None]
  - FEMUR FRACTURE [None]
